FAERS Safety Report 4743937-6 (Version None)
Quarter: 2005Q3

REPORT INFORMATION
  Report Type: 
  Country: None (occurrence: None)
  Receive Date: 20050810
  Receipt Date: 20050810
  Transmission Date: 20060218
  Serious: Yes (Life-Threatening)
  Sender: FDA-Public Use
  Company Number: None

PATIENT
  Age: 39 Year
  Sex: Female
  Weight: 62.09 kg

DRUGS (12)
  1. ALBUTEROL [Suspect]
     Indication: PULMONARY FUNCTION TEST
     Dosage: 2 PUFFS ONE TIME RESPIRATORY
     Route: 055
     Dates: start: 20050613, end: 20050613
  2. DOXEPIN HCL [Concomitant]
  3. ZOLPIDEM [Concomitant]
  4. APAP TAB [Concomitant]
  5. BULTALBITAL [Concomitant]
  6. CAFFEINE [Concomitant]
  7. IBUPROFEN [Concomitant]
  8. CLIMARA [Concomitant]
  9. FOMOTEROL [Concomitant]
  10. CLONAZEPAM [Concomitant]
  11. GUAIFENESIN [Concomitant]
  12. BENZONATATE [Concomitant]

REACTIONS (6)
  - ANAPHYLACTIC REACTION [None]
  - BRONCHOSPASM [None]
  - DYSPNOEA [None]
  - HEART RATE INCREASED [None]
  - PROCEDURAL COMPLICATION [None]
  - STRIDOR [None]
